FAERS Safety Report 15336658 (Version 1)
Quarter: 2018Q3

REPORT INFORMATION
  Report Type: Spontaneous
  Country: US (occurrence: US)
  Receive Date: 20180830
  Receipt Date: 20180830
  Transmission Date: 20181010
  Serious: No
  Sender: FDA-Public Use
  Company Number: US-ASTRAZENECA-2018SF06295

PATIENT
  Age: 55 Year
  Sex: Male

DRUGS (1)
  1. TAGRISSO [Suspect]
     Active Substance: OSIMERTINIB
     Indication: NON-SMALL CELL LUNG CANCER
     Route: 048

REACTIONS (5)
  - Pericardial effusion [Unknown]
  - Ataxia [Unknown]
  - Hepatic enzyme abnormal [Recovering/Resolving]
  - Dizziness postural [Unknown]
  - Tachycardia [Recovering/Resolving]
